FAERS Safety Report 4698806-7 (Version None)
Quarter: 2005Q2

REPORT INFORMATION
  Report Type: 
  Country: None (occurrence: None)
  Receive Date: 20050621
  Receipt Date: 20050329
  Transmission Date: 20051028
  Serious: Yes (Other)
  Sender: FDA-Public Use
  Company Number: PHEH2005US03713

PATIENT
  Sex: Female

DRUGS (5)
  1. EXELON [Suspect]
     Indication: DEMENTIA ALZHEIMER'S TYPE
     Dosage: UNK, BID, ORAL
     Route: 048
     Dates: start: 20020101, end: 20050320
  2. EXELON [Suspect]
     Indication: DEMENTIA ALZHEIMER'S TYPE
     Dosage: UNK, BID, ORAL
     Route: 048
     Dates: start: 20050321
  3. NAMENDA (MEMANTINE HYDROCHLORIDE) [Concomitant]
  4. SYNTHROID [Concomitant]
  5. LISINOPRIL [Concomitant]

REACTIONS (2)
  - FATIGUE [None]
  - HALLUCINATION, VISUAL [None]
